FAERS Safety Report 9834099 (Version 1)
Quarter: 2014Q1

REPORT INFORMATION
  Report Type: Spontaneous
  Country: US (occurrence: US)
  Receive Date: 20140122
  Receipt Date: 20140122
  Transmission Date: 20141002
  Serious: Yes (Other)
  Sender: FDA-Public Use
  Company Number: US-BAYER-2014-009639

PATIENT
  Age: 37 Year
  Sex: Female
  Weight: 70.3 kg

DRUGS (9)
  1. YASMIN [Suspect]
  2. AMBIEN [Concomitant]
     Dosage: 10 MG, HS AS NEEDED
     Route: 048
  3. LEVOXYL [Concomitant]
     Dosage: 0.125 MG, DAILY
     Route: 048
  4. CELEXA [Concomitant]
     Dosage: 20 MG, UNK
     Route: 048
  5. NEXIUM [Concomitant]
     Dosage: 40 MG, DAILY
     Route: 048
  6. NASACORT AQ [Concomitant]
     Dosage: 55 MCG PER INHALATION, 2 SPRAYS DAILY
     Route: 045
  7. LORTAB [Concomitant]
  8. SYNTHROID [Concomitant]
  9. PERCOCET [Concomitant]
     Indication: PAIN

REACTIONS (1)
  - Subclavian vein thrombosis [Recovered/Resolved]
